FAERS Safety Report 6089497-1 (Version None)
Quarter: 2009Q1

REPORT INFORMATION
  Report Type: 
  Country: None (occurrence: None)
  Receive Date: 20090220
  Receipt Date: 20090220
  Transmission Date: 20090719
  Serious: Yes (Hospitalization)
  Sender: FDA-Public Use
  Company Number: None

PATIENT
  Sex: Male
  Weight: 41.39 kg

DRUGS (1)
  1. IV IMMUNE GLOBULIN [Suspect]
     Dates: start: 20081207, end: 20081208

REACTIONS (1)
  - MENINGITIS ASEPTIC [None]
